FAERS Safety Report 18573358 (Version 1)
Quarter: 2020Q4

REPORT INFORMATION
  Report Type: Spontaneous
  Country: AU (occurrence: AU)
  Receive Date: 20201203
  Receipt Date: 20201203
  Transmission Date: 20210114
  Serious: No
  Sender: FDA-Public Use
  Company Number: AU-LUPIN PHARMACEUTICALS INC.-2020-02206

PATIENT
  Sex: Female

DRUGS (1)
  1. EVELYN 150/30 ED TABLET [Suspect]
     Active Substance: ETHINYL ESTRADIOL\LEVONORGESTREL
     Indication: ORAL CONTRACEPTION
     Dosage: UNK, (0.15/0.03 MG)
     Route: 065

REACTIONS (2)
  - Constipation [Not Recovered/Not Resolved]
  - Nausea [Recovering/Resolving]
